FAERS Safety Report 4277021-5 (Version None)
Quarter: 2004Q1

REPORT INFORMATION
  Report Type: 
  Country: None (occurrence: None)
  Receive Date: 20040112
  Receipt Date: 20031230
  Transmission Date: 20041129
  Serious: Yes (Hospitalization, Other)
  Sender: FDA-Public Use
  Company Number: 12452892

PATIENT
  Sex: Female

DRUGS (1)
  1. METHOTREXATE [Suspect]
     Indication: RHEUMATOID ARTHRITIS
     Dosage: 15 MILLIGRAM, 1/1 WEEK IM
     Route: 030
     Dates: start: 19980201, end: 19980901

REACTIONS (9)
  - BLOOD CREATININE INCREASED [None]
  - DIARRHOEA [None]
  - GENERAL PHYSICAL HEALTH DETERIORATION [None]
  - HAEMORRHAGE [None]
  - OVERDOSE [None]
  - PANCYTOPENIA [None]
  - SEPSIS [None]
  - STOMATITIS [None]
  - URINARY TRACT INFECTION [None]
